FAERS Safety Report 24613405 (Version 1)
Quarter: 2024Q4

REPORT INFORMATION
  Report Type: Spontaneous
  Country: US (occurrence: US)
  Receive Date: 20241113
  Receipt Date: 20241113
  Transmission Date: 20250114
  Serious: Yes (Hospitalization, Other)
  Sender: GLAND PHARMA LTD
  Company Number: US-GLANDPHARMA-US-2024GLNLIT00959

PATIENT
  Age: 64 Year
  Sex: Male

DRUGS (25)
  1. FOSCARNET SODIUM [Suspect]
     Active Substance: FOSCARNET SODIUM
     Indication: Cytomegalovirus infection reactivation
     Route: 035
     Dates: start: 202108, end: 202211
  2. FOSCARNET SODIUM [Suspect]
     Active Substance: FOSCARNET SODIUM
     Indication: Cytomegalovirus chorioretinitis
     Route: 035
     Dates: start: 20200402, end: 20220503
  3. FOSCARNET SODIUM [Suspect]
     Active Substance: FOSCARNET SODIUM
     Indication: Cytomegalovirus viraemia
     Route: 035
     Dates: start: 20220518, end: 20220614
  4. CARFILZOMIB [Concomitant]
     Active Substance: CARFILZOMIB
     Indication: Cytomegalovirus viraemia
     Route: 065
  5. CARFILZOMIB [Concomitant]
     Active Substance: CARFILZOMIB
     Indication: Cytomegalovirus chorioretinitis
  6. CARFILZOMIB [Concomitant]
     Active Substance: CARFILZOMIB
     Indication: Cytomegalovirus infection
  7. LENALIDOMIDE [Concomitant]
     Active Substance: LENALIDOMIDE
     Indication: Cytomegalovirus infection
     Route: 065
  8. LENALIDOMIDE [Concomitant]
     Active Substance: LENALIDOMIDE
     Indication: Cytomegalovirus chorioretinitis
  9. LENALIDOMIDE [Concomitant]
     Active Substance: LENALIDOMIDE
     Indication: Cytomegalovirus viraemia
  10. DEXAMETHASONE [Concomitant]
     Active Substance: DEXAMETHASONE
     Indication: Product used for unknown indication
     Route: 065
  11. DARATUMUMAB [Concomitant]
     Active Substance: DARATUMUMAB
     Route: 065
  12. POMALIDOMIDE [Concomitant]
     Active Substance: POMALIDOMIDE
     Route: 065
  13. CYCLOPHOSPHAMIDE [Concomitant]
     Active Substance: CYCLOPHOSPHAMIDE
     Route: 065
     Dates: start: 202205
  14. CYCLOPHOSPHAMIDE [Concomitant]
     Active Substance: CYCLOPHOSPHAMIDE
     Route: 065
  15. THALIDOMIDE [Concomitant]
     Active Substance: THALIDOMIDE
     Route: 065
  16. VALGANCICLOVIR [Concomitant]
     Active Substance: VALGANCICLOVIR
     Route: 048
     Dates: start: 20210824, end: 20211005
  17. VALGANCICLOVIR [Concomitant]
     Active Substance: VALGANCICLOVIR
     Route: 048
     Dates: start: 20210503, end: 20210519
  18. GANCICLOVIR [Concomitant]
     Active Substance: GANCICLOVIR
     Indication: Plasma cell myeloma
     Dates: start: 20210824, end: 20211005
  19. LETERMOVIR [Concomitant]
     Active Substance: LETERMOVIR
     Route: 065
  20. FLUDARABINE [Concomitant]
     Active Substance: FLUDARABINE PHOSPHATE
     Route: 065
     Dates: start: 202205
  21. FLUDARABINE [Concomitant]
     Active Substance: FLUDARABINE PHOSPHATE
     Route: 065
  22. IDECABTAGENE VICLEUCEL [Concomitant]
     Active Substance: IDECABTAGENE VICLEUCEL
     Route: 065
     Dates: start: 202205
  23. TOCILIZUMAB [Concomitant]
     Active Substance: TOCILIZUMAB
     Indication: Cytokine release syndrome
     Route: 065
  24. TOCILIZUMAB [Concomitant]
     Active Substance: TOCILIZUMAB
  25. HUMAN IMMUNOGLOBULIN G [Concomitant]
     Active Substance: HUMAN IMMUNOGLOBULIN G
     Indication: Hypogammaglobulinaemia
     Route: 065

REACTIONS (3)
  - Acute kidney injury [Unknown]
  - Full blood count decreased [Unknown]
  - Drug ineffective [Unknown]
